FAERS Safety Report 23557442 (Version 3)
Quarter: 2024Q2

REPORT INFORMATION
  Report Type: Spontaneous
  Country: US (occurrence: US)
  Receive Date: 20240223
  Receipt Date: 20240424
  Transmission Date: 20240716
  Serious: No
  Sender: FDA-Public Use
  Company Number: US-BRISTOL-MYERS SQUIBB COMPANY-2024-029258

PATIENT
  Age: 68 Year
  Sex: Female
  Weight: 60.78 kg

DRUGS (2)
  1. POMALYST [Suspect]
     Active Substance: POMALIDOMIDE
     Indication: Plasma cell myeloma
     Dosage: DAILY FOR 21DAYS THEN 7 DAYS OFF
     Route: 048
  2. POMALYST [Suspect]
     Active Substance: POMALIDOMIDE
     Dosage: DAILY FOR 21DAYS THEN 7 DAYS OFF
     Route: 048

REACTIONS (4)
  - Muscle spasms [Unknown]
  - White blood cell count decreased [Unknown]
  - Muscle twitching [Unknown]
  - Hot flush [Not Recovered/Not Resolved]
